FAERS Safety Report 25472564 (Version 1)
Quarter: 2025Q2

REPORT INFORMATION
  Report Type: Spontaneous
  Country: US (occurrence: US)
  Receive Date: 20250624
  Receipt Date: 20250624
  Transmission Date: 20250716
  Serious: Yes (Other)
  Sender: SUNOVION
  Company Number: US-SUMITOMO PHARMA SWITZERLAND GMBH-2025SPA007408

PATIENT

DRUGS (2)
  1. GEMTESA [Suspect]
     Active Substance: VIBEGRON
     Indication: Hypertonic bladder
     Dosage: 75 MG, HS (BEFORE BED, AROUND 10:30-11:00)
     Route: 048
  2. OXYBUTYNIN [Suspect]
     Active Substance: OXYBUTYNIN
     Indication: Hypertonic bladder
     Route: 065

REACTIONS (3)
  - Neoplasm malignant [Unknown]
  - Nocturia [Not Recovered/Not Resolved]
  - Therapeutic product effect incomplete [Unknown]

NARRATIVE: CASE EVENT DATE: 20250101
